FAERS Safety Report 19330244 (Version 17)
Quarter: 2022Q1

REPORT INFORMATION
  Report Type: Report from Study
  Country: DE (occurrence: DE)
  Receive Date: 20210528
  Receipt Date: 20220127
  Transmission Date: 20220424
  Serious: Yes (Death, Hospitalization, Other)
  Sender: FDA-Public Use
  Company Number: DE-TAKEDA-2021TUS029825

PATIENT
  Age: 77 Year
  Sex: Female
  Weight: 49 kg

DRUGS (28)
  1. VON WILLEBRAND FACTOR HUMAN [Suspect]
     Active Substance: VON WILLEBRAND FACTOR HUMAN
     Indication: Von Willebrand^s disease
     Dosage: 1950 GRAM, QD
     Route: 042
     Dates: start: 20210505
  2. VON WILLEBRAND FACTOR HUMAN [Suspect]
     Active Substance: VON WILLEBRAND FACTOR HUMAN
     Indication: Prophylaxis
     Dosage: 1950 INTERNATIONAL UNIT, QD
     Route: 042
     Dates: start: 20210505
  3. VON WILLEBRAND FACTOR HUMAN [Suspect]
     Active Substance: VON WILLEBRAND FACTOR HUMAN
     Dosage: 1950 INTERNATIONAL UNIT, QD
     Route: 042
     Dates: start: 20210505
  4. VON WILLEBRAND FACTOR HUMAN [Suspect]
     Active Substance: VON WILLEBRAND FACTOR HUMAN
     Dosage: 1950 INTERNATIONAL UNIT, QD
     Route: 042
     Dates: start: 20210505
  5. VON WILLEBRAND FACTOR HUMAN [Suspect]
     Active Substance: VON WILLEBRAND FACTOR HUMAN
     Dosage: 1950 INTERNATIONAL UNIT, QD
     Route: 042
     Dates: start: 20210505
  6. VON WILLEBRAND FACTOR HUMAN [Suspect]
     Active Substance: VON WILLEBRAND FACTOR HUMAN
     Dosage: 1950 INTERNATIONAL UNIT, QD
     Route: 042
     Dates: start: 20210505, end: 20210629
  7. VON WILLEBRAND FACTOR HUMAN [Suspect]
     Active Substance: VON WILLEBRAND FACTOR HUMAN
     Dosage: 1950 GRAM
     Route: 042
     Dates: start: 20210505, end: 20210720
  8. VON WILLEBRAND FACTOR HUMAN [Suspect]
     Active Substance: VON WILLEBRAND FACTOR HUMAN
     Dosage: 1950 GRAM
     Route: 042
     Dates: start: 20210505
  9. VON WILLEBRAND FACTOR HUMAN [Suspect]
     Active Substance: VON WILLEBRAND FACTOR HUMAN
     Dosage: 650 IU INTERNATIONAL UNIT(S), EVERY 2 DAYS
     Route: 042
     Dates: start: 20210505
  10. VON WILLEBRAND FACTOR HUMAN [Suspect]
     Active Substance: VON WILLEBRAND FACTOR HUMAN
     Dosage: 1300 INTERNATIONAL UNIT, 3/WEEK
     Route: 042
     Dates: start: 20210505
  11. VON WILLEBRAND FACTOR HUMAN [Suspect]
     Active Substance: VON WILLEBRAND FACTOR HUMAN
     Dosage: 1950 INTERNATIONAL UNIT, Q3WEEKS
     Route: 042
     Dates: start: 20210505
  12. VON WILLEBRAND FACTOR HUMAN [Suspect]
     Active Substance: VON WILLEBRAND FACTOR HUMAN
     Dosage: 650 INTERNATIONAL UNIT, 3/WEEK
     Route: 042
     Dates: start: 20210505
  13. VON WILLEBRAND FACTOR HUMAN [Suspect]
     Active Substance: VON WILLEBRAND FACTOR HUMAN
     Dosage: 1950 INTERNATIONAL UNIT, 3/WEEK
     Route: 042
     Dates: start: 20210505
  14. VON WILLEBRAND FACTOR HUMAN [Suspect]
     Active Substance: VON WILLEBRAND FACTOR HUMAN
     Dosage: 650 INTERNATIONAL UNIT, 3/WEEK
     Route: 042
     Dates: start: 20210505
  15. VON WILLEBRAND FACTOR HUMAN [Suspect]
     Active Substance: VON WILLEBRAND FACTOR HUMAN
     Dosage: 1300 INTERNATIONAL UNIT, 3/WEEK
     Route: 042
     Dates: start: 20210505
  16. VON WILLEBRAND FACTOR HUMAN [Suspect]
     Active Substance: VON WILLEBRAND FACTOR HUMAN
     Dosage: 1300 INTERNATIONAL UNIT
     Route: 042
  17. VON WILLEBRAND FACTOR HUMAN [Suspect]
     Active Substance: VON WILLEBRAND FACTOR HUMAN
     Dosage: 1950 INTERNATIONAL UNIT, 3/WEEK
     Route: 042
     Dates: start: 20210505
  18. VON WILLEBRAND FACTOR HUMAN [Suspect]
     Active Substance: VON WILLEBRAND FACTOR HUMAN
     Dosage: 1950 INTERNATIONAL UNIT, 3/WEEK
     Route: 042
     Dates: start: 20210505
  19. FOLIC ACID [Concomitant]
     Active Substance: FOLIC ACID
     Dosage: 5 MILLIGRAM, QD
     Route: 048
  20. PANTOZOL [Concomitant]
     Active Substance: PANTOPRAZOLE SODIUM
     Dosage: 40 MILLIGRAM, QD
     Route: 048
  21. ATORVASTATIN [Concomitant]
     Active Substance: ATORVASTATIN
     Dosage: 10 MILLIGRAM, QD
     Route: 048
  22. TORSEMIDE [Concomitant]
     Active Substance: TORSEMIDE
     Dosage: UNK UNK, BID
     Route: 048
  23. MAGNESIUM [Concomitant]
     Active Substance: MAGNESIUM
     Dosage: UNK UNK, TID
     Route: 065
  24. SUCRALFATE [Concomitant]
     Active Substance: SUCRALFATE
     Dosage: UNK UNK, TID
     Route: 048
  25. PREGABALIN [Concomitant]
     Active Substance: PREGABALIN
     Dosage: UNK UNK, BID
     Route: 048
  26. PREGABALIN [Concomitant]
     Active Substance: PREGABALIN
     Dosage: 25 MILLIGRAM, QD
     Route: 065
  27. MOVICOL [Concomitant]
     Active Substance: POLYETHYLENE GLYCOL 3350\POTASSIUM CHLORIDE\SODIUM BICARBONATE\SODIUM CHLORIDE
     Dosage: UNK UNK, QD
     Route: 048
  28. HYDROXYUREA [Concomitant]
     Active Substance: HYDROXYUREA
     Dosage: 500 MILLIGRAM, QD
     Route: 065

REACTIONS (25)
  - Death [Fatal]
  - Peripheral swelling [Recovered/Resolved]
  - Haemorrhage [Recovered/Resolved]
  - Aortic valve stenosis [Recovered/Resolved]
  - Vascular pseudoaneurysm [Recovered/Resolved]
  - Fall [Unknown]
  - Skin hypertrophy [Not Recovered/Not Resolved]
  - Oedema peripheral [Not Recovered/Not Resolved]
  - Skin laceration [Recovering/Resolving]
  - Subdural haemorrhage [Unknown]
  - Haematoma [Recovering/Resolving]
  - Aspiration [Not Recovered/Not Resolved]
  - Eye haemorrhage [Recovering/Resolving]
  - Eyelid bleeding [Recovering/Resolving]
  - Eyelid haematoma [Recovered/Resolved]
  - Injection site haemorrhage [Recovering/Resolving]
  - Haemoglobin decreased [Recovered/Resolved with Sequelae]
  - Platelet count decreased [Recovered/Resolved with Sequelae]
  - Wound [Recovering/Resolving]
  - Pain in extremity [Recovering/Resolving]
  - Dehydration [Recovering/Resolving]
  - Hyponatraemia [Recovering/Resolving]
  - Neurological symptom [Unknown]
  - Infusion related reaction [Unknown]
  - Off label use [Unknown]

NARRATIVE: CASE EVENT DATE: 20210518
